FAERS Safety Report 8512441-1 (Version None)
Quarter: 2012Q2

REPORT INFORMATION
  Report Type: 
  Country: None (occurrence: None)
  Receive Date: 20120406
  Receipt Date: 20111003
  Transmission Date: 20120825
  Serious: Yes (Hospitalization)
  Sender: FDA-Public Use
  Company Number: US-CYPR-2011-000098

PATIENT
  Sex: Male
  Weight: 104 kg

DRUGS (24)
  1. CLOPIDOGREL [Suspect]
     Indication: ANTIPLATELET THERAPY
     Dosage: 75 MG ORAL
     Route: 048
     Dates: start: 20101013
  2. NORFLEX [Concomitant]
  3. CYPHER STEN (1) [Concomitant]
  4. ZETIA [Concomitant]
  5. AMARYL [Concomitant]
  6. ACEBUTOLOL [Concomitant]
  7. NITROGLYCERIN [Concomitant]
  8. LASIX [Concomitant]
  9. METFORMIN HYDROCHLORIDE [Concomitant]
  10. CLONAZEPAM [Concomitant]
  11. CYPHER STENT (2) [Concomitant]
  12. DAYPRO [Concomitant]
  13. TRICOR [Concomitant]
  14. HUMIRA [Concomitant]
  15. ASPIRIN [Suspect]
     Indication: CORONARY ARTERY DISEASE
     Dosage: 81 MG ORAL
     Route: 048
     Dates: start: 20091007
  16. SINGULAIR [Concomitant]
  17. NEURONTIN [Concomitant]
  18. ACTOS [Concomitant]
  19. POTASSIUM CHLORIDE [Concomitant]
  20. ULTRAM [Concomitant]
  21. LEXAPRO [Concomitant]
  22. LENOXIN [Concomitant]
  23. BENICAR [Concomitant]
  24. CYPER STENT (3) [Concomitant]

REACTIONS (1)
  - SEPSIS [None]
